FAERS Safety Report 23740813 (Version 1)
Quarter: 2024Q2

REPORT INFORMATION
  Report Type: Report from Study
  Country: TT (occurrence: None)
  Receive Date: 20240415
  Receipt Date: 20240415
  Transmission Date: 20240716
  Serious: Yes (Death)
  Sender: FDA-Public Use
  Company Number: 2020SF45717

PATIENT
  Sex: Female

DRUGS (1)
  1. KOMBIGLYZE XR [Suspect]
     Active Substance: METFORMIN HYDROCHLORIDE\SAXAGLIPTIN HYDROCHLORIDE
     Dosage: 2.5MG/1000MG ONE TABLET IN THE MORNING AND ONE TABLET AT NIGHT
     Route: 048
     Dates: start: 2012

REACTIONS (2)
  - Myocardial infarction [Fatal]
  - Off label use [Unknown]
